FAERS Safety Report 25079826 (Version 2)
Quarter: 2025Q3

REPORT INFORMATION
  Report Type: Spontaneous
  Country: CN (occurrence: CN)
  Receive Date: 20250314
  Receipt Date: 20250809
  Transmission Date: 20251020
  Serious: Yes (Life-Threatening, Hospitalization, Other)
  Sender: ALEXION PHARMACEUTICALS
  Company Number: CN-ASTRAZENECA-202503CHN006857CN

PATIENT
  Age: 79 Year
  Sex: Female
  Weight: 65 kg

DRUGS (2)
  1. KOMBIGLYZE XR [Suspect]
     Active Substance: METFORMIN HYDROCHLORIDE\SAXAGLIPTIN HYDROCHLORIDE
     Indication: Type 2 diabetes mellitus
     Dosage: 1 DOSAGE FORM, QD
     Dates: start: 20250210, end: 20250306
  2. GLIMEPIRIDE [Suspect]
     Active Substance: GLIMEPIRIDE
     Indication: Type 2 diabetes mellitus
     Dosage: 1 MILLIGRAM, QD
     Dates: start: 20250210, end: 20250306

REACTIONS (1)
  - Hypoglycaemic coma [Recovering/Resolving]

NARRATIVE: CASE EVENT DATE: 20250306
